FAERS Safety Report 8895267 (Version 2)
Quarter: 2013Q1

REPORT INFORMATION
  Report Type: Spontaneous
  Country: US (occurrence: US)
  Receive Date: 20121108
  Receipt Date: 20130121
  Transmission Date: 20140127
  Serious: Yes (Hospitalization, Other)
  Sender: FDA-Public Use
  Company Number: US-ELI_LILLY_AND_COMPANY-US201210009796

PATIENT
  Age: 79 Year
  Sex: Male
  Weight: 73 kg

DRUGS (6)
  1. EFFIENT [Suspect]
     Indication: PERCUTANEOUS CORONARY INTERVENTION
     Dosage: 10 MG, QD
     Route: 048
     Dates: start: 20120222, end: 20121013
  2. EFFIENT [Suspect]
     Dosage: UNK
     Dates: start: 20121028
  3. ASPIRIN [Concomitant]
  4. ATORVASTATIN [Concomitant]
  5. DIOVAN [Concomitant]
  6. GLIMEPIRIDE [Concomitant]

REACTIONS (1)
  - Coronary artery disease [Recovered/Resolved]
